FAERS Safety Report 18391617 (Version 2)
Quarter: 2020Q4

REPORT INFORMATION
  Report Type: Spontaneous
  Country: IT (occurrence: IT)
  Receive Date: 20201016
  Receipt Date: 20201020
  Transmission Date: 20210114
  Serious: Yes (Death, Other)
  Sender: FDA-Public Use
  Company Number: IT-SA-2020SA289404

PATIENT

DRUGS (1)
  1. MYOZYME [Suspect]
     Active Substance: ALGLUCOSIDASE ALFA
     Indication: GLYCOGEN STORAGE DISEASE TYPE II
     Dosage: 20 MG/KG, QW
     Route: 041
     Dates: start: 201712, end: 20201008

REACTIONS (2)
  - Cardio-respiratory arrest [Fatal]
  - Off label use [Unknown]

NARRATIVE: CASE EVENT DATE: 201712
